FAERS Safety Report 5404661-X (Version None)
Quarter: 2007Q3

REPORT INFORMATION
  Report Type: 
  Country: None (occurrence: None)
  Receive Date: 20070731
  Receipt Date: 20070716
  Transmission Date: 20080115
  Serious: Yes (Death)
  Sender: FDA-Public Use
  Company Number: 158071ISR

PATIENT
  Age: 85 Year
  Sex: Female

DRUGS (4)
  1. PREDNISOLONE [Suspect]
     Indication: ANAEMIA HAEMOLYTIC AUTOIMMUNE
     Dosage: 100 MG (100 MG, 1 IN 1D)
  2. CYCLOPHOSPHAMIDE [Suspect]
     Indication: ANAEMIA HAEMOLYTIC AUTOIMMUNE
  3. RITUXAN [Suspect]
     Indication: ANAEMIA HAEMOLYTIC AUTOIMMUNE
  4. VINCRISTINE [Suspect]
     Dosage: (2 MG)

REACTIONS (12)
  - BLOOD BILIRUBIN INCREASED [None]
  - DRUG INEFFECTIVE [None]
  - HAEMOGLOBIN DECREASED [None]
  - HAEMOLYSIS [None]
  - JAUNDICE [None]
  - LETHARGY [None]
  - PALLOR [None]
  - PLATELET COUNT DECREASED [None]
  - POLYCHROMASIA [None]
  - RED BLOOD CELL AGGLUTINATION PRESENT [None]
  - REFUSAL OF TREATMENT BY PATIENT [None]
  - SPHEROCYTIC ANAEMIA [None]
